FAERS Safety Report 5501362-4 (Version None)
Quarter: 2007Q4

REPORT INFORMATION
  Report Type: 
  Country: None (occurrence: None)
  Receive Date: 20071026
  Receipt Date: 20071019
  Transmission Date: 20080405
  Serious: Yes (Other)
  Sender: FDA-Public Use
  Company Number: THQ2007A01003

PATIENT

DRUGS (3)
  1. PIOGLITAZONE HYDROCHLORIDE [Suspect]
  2. VALPROATE SODIUM [Suspect]
  3. LAMOTRIGINE [Suspect]

REACTIONS (4)
  - DRUG INTERACTION [None]
  - GRAND MAL CONVULSION [None]
  - HYPOGLYCAEMIA [None]
  - MYOCLONUS [None]
